FAERS Safety Report 22735823 (Version 2)
Quarter: 2025Q2

REPORT INFORMATION
  Report Type: Spontaneous
  Country: CO (occurrence: ES)
  Receive Date: 20230721
  Receipt Date: 20250505
  Transmission Date: 20250717
  Serious: Yes (Other)
  Sender: AUROBINDO
  Company Number: ES-ViiV Healthcare Limited-CO2023GSK088579

PATIENT
  Age: 28 Year
  Sex: Male

DRUGS (12)
  1. EMTRICITABINE\TENOFOVIR [Suspect]
     Active Substance: EMTRICITABINE\TENOFOVIR
     Indication: HIV infection
     Route: 065
     Dates: start: 202207
  2. DOLUTEGRAVIR [Suspect]
     Active Substance: DOLUTEGRAVIR
     Indication: HIV infection
     Route: 065
     Dates: start: 202207
  3. ITRACONAZOLE [Concomitant]
     Active Substance: ITRACONAZOLE
     Indication: Disseminated tuberculosis
     Route: 065
     Dates: start: 202207
  4. ITRACONAZOLE [Concomitant]
     Active Substance: ITRACONAZOLE
     Indication: Histoplasmosis
  5. AMPHOTERICIN B DEOXYCHOLATE [Concomitant]
     Active Substance: AMPHOTERICIN B DEOXYCHOLATE
     Indication: Disseminated tuberculosis
     Route: 065
     Dates: start: 202207
  6. AMPHOTERICIN B DEOXYCHOLATE [Concomitant]
     Active Substance: AMPHOTERICIN B DEOXYCHOLATE
     Indication: Histoplasmosis
  7. ISONIAZID [Concomitant]
     Active Substance: ISONIAZID
     Indication: Histoplasmosis
     Route: 065
     Dates: start: 202207
  8. ISONIAZID [Concomitant]
     Active Substance: ISONIAZID
     Indication: Disseminated tuberculosis
  9. RIFAMPIN [Concomitant]
     Active Substance: RIFAMPIN
     Indication: Disseminated tuberculosis
     Route: 065
     Dates: start: 202207
  10. RIFAMPIN [Concomitant]
     Active Substance: RIFAMPIN
     Indication: Histoplasmosis
  11. PYRAZINAMIDE [Concomitant]
     Active Substance: PYRAZINAMIDE
     Indication: Disseminated tuberculosis
     Route: 065
     Dates: start: 202207
  12. PYRAZINAMIDE [Concomitant]
     Active Substance: PYRAZINAMIDE
     Indication: Histoplasmosis

REACTIONS (15)
  - Immunosuppression [Unknown]
  - Monkeypox [Unknown]
  - Conjunctivitis [Recovering/Resolving]
  - Macule [Unknown]
  - Lacrimation increased [Recovering/Resolving]
  - Lymphadenopathy [Unknown]
  - Rash papular [Unknown]
  - Pustule [Unknown]
  - Secretion discharge [Recovered/Resolved]
  - Swelling of eyelid [Recovering/Resolving]
  - Skin lesion [Recovered/Resolved]
  - Skin hyperpigmentation [Unknown]
  - Rash erythematous [Unknown]
  - Drug ineffective [Unknown]
  - Treatment noncompliance [Unknown]

NARRATIVE: CASE EVENT DATE: 20221001
